FAERS Safety Report 7777057-3 (Version None)
Quarter: 2011Q3

REPORT INFORMATION
  Report Type: 
  Country: None (occurrence: None)
  Receive Date: 20110926
  Receipt Date: 20110926
  Transmission Date: 20111222
  Serious: No
  Sender: FDA-Public Use
  Company Number: None

PATIENT
  Age: 46 Year
  Sex: Female
  Weight: 59.874 kg

DRUGS (1)
  1. LEVAQUIN [Suspect]
     Indication: SINUSITIS
     Dosage: 750MG
     Route: 048
     Dates: start: 20110105, end: 20110110

REACTIONS (7)
  - PALPITATIONS [None]
  - SINUSITIS [None]
  - NEURALGIA [None]
  - HYPOAESTHESIA [None]
  - BURNING SENSATION [None]
  - HYPERHIDROSIS [None]
  - TENDON PAIN [None]
